FAERS Safety Report 5313957-1 (Version None)
Quarter: 2007Q2

REPORT INFORMATION
  Report Type: 
  Country: None (occurrence: None)
  Receive Date: 20070501
  Receipt Date: 20070420
  Transmission Date: 20071010
  Serious: Yes (Other)
  Sender: FDA-Public Use
  Company Number: US-PFIZER INC-2007031821

PATIENT
  Sex: Male
  Weight: 65.8 kg

DRUGS (4)
  1. GEODON [Suspect]
     Indication: DEPRESSION
     Dates: start: 20070402, end: 20070416
  2. GEODON [Suspect]
     Indication: PSYCHOTIC DISORDER
  3. ZYPREXA [Concomitant]
  4. CLONAZEPAM [Concomitant]

REACTIONS (13)
  - ABNORMAL BEHAVIOUR [None]
  - CORNEAL REFLEX DECREASED [None]
  - EATING DISORDER SYMPTOM [None]
  - FLUID INTAKE REDUCED [None]
  - HOMICIDAL IDEATION [None]
  - INSOMNIA [None]
  - MENTAL IMPAIRMENT [None]
  - MYDRIASIS [None]
  - POLYDIPSIA [None]
  - RASH GENERALISED [None]
  - SUICIDAL IDEATION [None]
  - THINKING ABNORMAL [None]
  - VERTIGO [None]
